FAERS Safety Report 15058973 (Version 2)
Quarter: 2018Q3

REPORT INFORMATION
  Report Type: Other
  Country: DE (occurrence: DE)
  Receive Date: 20180625
  Receipt Date: 20180903
  Transmission Date: 20181010
  Serious: Yes (Other)
  Sender: FDA-Public Use
  Company Number: DE-LUPIN PHARMACEUTICALS INC.-2018-04564

PATIENT
  Age: 36 Year
  Sex: Female
  Weight: 73 kg

DRUGS (3)
  1. QUETIAPINE. [Suspect]
     Active Substance: QUETIAPINE
     Indication: BIPOLAR DISORDER
     Dosage: 250 MG, QD
     Route: 048
     Dates: start: 20170316
  2. QUETIAPINE. [Suspect]
     Active Substance: QUETIAPINE
     Dosage: 450 MG, QD (INCREASED TO 450 MG STEP BY STEP)
     Route: 048
     Dates: end: 20171113
  3. SEROQUEL [Suspect]
     Active Substance: QUETIAPINE FUMARATE
     Indication: BIPOLAR DISORDER
     Dosage: 850 [MG/D ]
     Route: 048
     Dates: start: 20171114, end: 20171211

REACTIONS (2)
  - Gestational diabetes [Recovered/Resolved]
  - Exposure during pregnancy [Unknown]
